FAERS Safety Report 21044464 (Version 2)
Quarter: 2022Q3

REPORT INFORMATION
  Report Type: Report from Study
  Country: ZA (occurrence: ZA)
  Receive Date: 20220705
  Receipt Date: 20220720
  Transmission Date: 20221026
  Serious: Yes (Death, Life-Threatening, Hospitalization, Other)
  Sender: FDA-Public Use
  Company Number: ZA-AMGEN-ZAFNI2022108912

PATIENT
  Age: 5 Year
  Sex: Male

DRUGS (7)
  1. BLINATUMOMAB [Suspect]
     Active Substance: BLINATUMOMAB
     Indication: Acute lymphocytic leukaemia recurrent
     Dosage: 4.25 MICROGRAM WITH DOSE INCREASE
     Route: 042
     Dates: start: 20210413
  2. BLINATUMOMAB [Suspect]
     Active Substance: BLINATUMOMAB
     Dosage: 9.5 MICROGRAM 9.5 MICROGRAM , IV CONTINUOUS (REPLACE BAG IN 48 HOURS))
     Route: 042
     Dates: start: 20210413
  3. BLINATUMOMAB [Suspect]
     Active Substance: BLINATUMOMAB
     Dosage: 9.5 MICROGRAM (9.5 MICROGRAM , IV CONTINUOUS (REPLACE BAG IN 48 HOURS)))
     Route: 042
     Dates: end: 202104
  4. DECADRON [Concomitant]
     Active Substance: DEXAMETHASONE
     Dosage: 8 MILLIGRAM ((2 DOSES))
     Route: 042
     Dates: start: 20210413, end: 20210413
  5. DECADRON [Concomitant]
     Active Substance: DEXAMETHASONE
     Dosage: 4 MILLIGRAM (2 DOSES)
     Route: 042
     Dates: start: 20210413, end: 20210413
  6. BACTRIM [Concomitant]
     Active Substance: SULFAMETHOXAZOLE\TRIMETHOPRIM
     Dosage: 7.5 MILLILITER, BID
     Route: 048
     Dates: start: 20210413, end: 20210420
  7. ALLOPURINOL [Concomitant]
     Active Substance: ALLOPURINOL
     Dosage: 100 MILLIGRAM, TID
     Route: 048
     Dates: start: 20210413, end: 20210420

REACTIONS (2)
  - Cytokine storm [Recovered/Resolved]
  - Acute lymphocytic leukaemia recurrent [Fatal]

NARRATIVE: CASE EVENT DATE: 20210415
